FAERS Safety Report 5408318-0 (Version None)
Quarter: 2007Q3

REPORT INFORMATION
  Report Type: 
  Country: None (occurrence: None)
  Receive Date: 20070808
  Receipt Date: 20070806
  Transmission Date: 20080115
  Serious: Yes (Hospitalization)
  Sender: FDA-Public Use
  Company Number: US-BRISTOL-MYERS SQUIBB COMPANY-13868823

PATIENT
  Sex: Female

DRUGS (3)
  1. COUMADIN [Suspect]
  2. FUROSEMIDE [Concomitant]
  3. KLOR-CON [Concomitant]

REACTIONS (9)
  - COUGH [None]
  - MUSCULOSKELETAL PAIN [None]
  - OEDEMA PERIPHERAL [None]
  - PAIN [None]
  - PAIN IN EXTREMITY [None]
  - PNEUMONIA [None]
  - RENAL PAIN [None]
  - SWELLING [None]
  - VISUAL DISTURBANCE [None]
